FAERS Safety Report 25100637 (Version 2)
Quarter: 2025Q2

REPORT INFORMATION
  Report Type: Spontaneous
  Country: US (occurrence: US)
  Receive Date: 20250320
  Receipt Date: 20250401
  Transmission Date: 20250717
  Serious: Yes (Hospitalization, Other)
  Sender: AUROBINDO
  Company Number: US-AUROBINDO-AUR-APL-2025-014543

PATIENT
  Age: 9 Decade
  Sex: Female

DRUGS (29)
  1. PAROXETINE [Interacting]
     Active Substance: PAROXETINE
     Indication: Product used for unknown indication
     Route: 065
  2. RANOLAZINE [Interacting]
     Active Substance: RANOLAZINE
     Indication: Angina pectoris
     Dosage: 500 MILLIGRAM, TWO TIMES A DAY
     Route: 065
  3. RANOLAZINE [Interacting]
     Active Substance: RANOLAZINE
     Dosage: 1000 MILLIGRAM, TWO TIMES A DAY
     Route: 065
  4. QUININE SULFATE [Suspect]
     Active Substance: QUININE SULFATE
     Indication: Product used for unknown indication
     Route: 065
  5. UNSPECIFIED INGREDIENT [Suspect]
     Active Substance: UNSPECIFIED INGREDIENT
     Indication: Product used for unknown indication
     Route: 065
  6. NIFEDIPINE [Suspect]
     Active Substance: NIFEDIPINE
     Indication: Product used for unknown indication
     Route: 065
  7. LACOSAMIDE [Suspect]
     Active Substance: LACOSAMIDE
     Indication: Product used for unknown indication
     Dosage: 100 MILLIGRAM, TWO TIMES A DAY
     Route: 065
  8. LACOSAMIDE [Suspect]
     Active Substance: LACOSAMIDE
     Route: 065
  9. CIPROFLOXACIN [Concomitant]
     Active Substance: CIPROFLOXACIN
     Indication: Urinary tract infection
     Dosage: 500 MILLIGRAM, TWO TIMES A DAY (TWO TIMES PER DAY FOR 7 DAYS)
     Route: 065
  10. METOPROLOL SUCCINATE [Concomitant]
     Active Substance: METOPROLOL SUCCINATE
     Indication: Cardiac disorder
     Route: 065
  11. LOSARTAN [Concomitant]
     Active Substance: LOSARTAN
     Indication: Cardiac disorder
     Route: 065
  12. LOSARTAN [Concomitant]
     Active Substance: LOSARTAN
     Route: 065
  13. LEVOTHYROXINE [Concomitant]
     Active Substance: LEVOTHYROXINE
     Indication: Product used for unknown indication
     Route: 065
  14. INSULIN ASPART [Concomitant]
     Active Substance: INSULIN ASPART
     Indication: Type 2 diabetes mellitus
     Route: 065
  15. INSULIN DEGLUDEC [Concomitant]
     Active Substance: INSULIN DEGLUDEC
     Indication: Type 2 diabetes mellitus
     Route: 065
  16. DAPAGLIFLOZIN [Concomitant]
     Active Substance: DAPAGLIFLOZIN
     Indication: Type 2 diabetes mellitus
     Route: 065
  17. SYNTHROID [Concomitant]
     Active Substance: LEVOTHYROXINE SODIUM
     Indication: Hypothyroidism
     Route: 065
  18. ATORVASTATIN [Concomitant]
     Active Substance: ATORVASTATIN
     Indication: Cardiac disorder
     Route: 065
  19. ASPIRIN [Concomitant]
     Active Substance: ASPIRIN
     Indication: Cardiac disorder
     Route: 065
  20. FESOTERODINE [Concomitant]
     Active Substance: FESOTERODINE
     Indication: Hypertonic bladder
     Route: 065
  21. VIBEGRON [Concomitant]
     Active Substance: VIBEGRON
     Indication: Hypertonic bladder
     Route: 065
  22. SENNA PLUS [Concomitant]
     Active Substance: DOCUSATE SODIUM\SENNOSIDES\SENNOSIDES A AND B
     Indication: Gastrointestinal disorder
     Route: 065
  23. DOCUSATE SODIUM [Concomitant]
     Active Substance: DOCUSATE SODIUM
     Indication: Gastrointestinal disorder
     Route: 065
  24. LINACLOTIDE [Concomitant]
     Active Substance: LINACLOTIDE
     Indication: Gastrointestinal disorder
     Route: 065
  25. BISACODYL [Concomitant]
     Active Substance: BISACODYL
     Indication: Gastrointestinal disorder
     Route: 065
  26. POLYETHYLENE GLYCOL [Concomitant]
     Active Substance: POLYETHYLENE GLYCOL
     Indication: Gastrointestinal disorder
     Route: 065
  27. FAMOTIDINE [Concomitant]
     Active Substance: FAMOTIDINE
     Indication: Product used for unknown indication
     Route: 065
  28. MAGNESIUM OXIDE [Concomitant]
     Active Substance: MAGNESIUM OXIDE
     Indication: Product used for unknown indication
     Dosage: 400 MILLIGRAM, TWO TIMES A DAY
     Route: 065
  29. VITAMIN D3 [Concomitant]
     Active Substance: CHOLECALCIFEROL
     Indication: Product used for unknown indication
     Route: 065

REACTIONS (8)
  - Seizure [Recovered/Resolved]
  - Delirium [Recovered/Resolved]
  - Acute kidney injury [Recovered/Resolved]
  - Mental status changes [Recovered/Resolved]
  - Confusional state [Recovered/Resolved]
  - Toxicity to various agents [Recovered/Resolved]
  - Drug interaction [Recovered/Resolved]
  - Anaphylactic reaction [Unknown]
